FAERS Safety Report 12517537 (Version 1)
Quarter: 2016Q2

REPORT INFORMATION
  Report Type: Spontaneous
  Country: IT (occurrence: IT)
  Receive Date: 20160630
  Receipt Date: 20160630
  Transmission Date: 20160815
  Serious: Yes (Hospitalization)
  Sender: FDA-Public Use
  Company Number: PHHY2016IT087297

PATIENT
  Age: 31 Year
  Sex: Male

DRUGS (4)
  1. PARACETAMOL [Suspect]
     Active Substance: ACETAMINOPHEN
     Indication: BACK PAIN
     Dosage: UNK
     Route: 065
     Dates: start: 20140204, end: 20140223
  2. BRUFEN [Suspect]
     Active Substance: IBUPROFEN
     Indication: BACK PAIN
     Dosage: 3 DF, PRN (UP TO 3 DRUG SACHETS A DAY AS NEEDED)
     Route: 048
     Dates: start: 20140204, end: 20140223
  3. VOLTAREN [Suspect]
     Active Substance: DICLOFENAC SODIUM
     Indication: BACK PAIN
     Dosage: UNK
     Route: 030
     Dates: start: 20140204, end: 20140223
  4. MUSCORIL [Suspect]
     Active Substance: THIOCOLCHICOSIDE
     Indication: BACK PAIN
     Dosage: UNK UNK, QD
     Route: 030
     Dates: start: 20140204, end: 20140223

REACTIONS (2)
  - Jaundice [Unknown]
  - Hepatitis [Unknown]

NARRATIVE: CASE EVENT DATE: 20140223
